FAERS Safety Report 6409081-7 (Version None)
Quarter: 2009Q4

REPORT INFORMATION
  Report Type: 
  Country: None (occurrence: None)
  Receive Date: 20091019
  Receipt Date: 20091015
  Transmission Date: 20100525
  Serious: Yes (Other)
  Sender: FDA-Public Use
  Company Number: 2009SP025921

PATIENT
  Age: 26 Year
  Sex: Male
  Weight: 95.2554 kg

DRUGS (4)
  1. CLARITIN-D 24 HOUR [Suspect]
     Indication: EYE PRURITUS
     Dosage: ; PO
     Route: 048
  2. CLARITIN-D 24 HOUR [Suspect]
     Indication: LACRIMATION INCREASED
     Dosage: ; PO
     Route: 048
  3. CLARITIN-D 24 HOUR [Suspect]
     Indication: MULTIPLE ALLERGIES
     Dosage: ; PO
     Route: 048
  4. CLARITIN-D 24 HOUR [Suspect]
     Indication: RHINORRHOEA
     Dosage: ; PO
     Route: 048

REACTIONS (2)
  - HYPOAESTHESIA FACIAL [None]
  - HYPOAESTHESIA ORAL [None]
